FAERS Safety Report 18240951 (Version 1)
Quarter: 2020Q3

REPORT INFORMATION
  Report Type: Spontaneous
  Country: US (occurrence: US)
  Receive Date: 20200905
  Receipt Date: 20200905
  Transmission Date: 20201103
  Serious: Yes (Disabling, Other)
  Sender: FDA-Public Use
  Company Number: None

PATIENT
  Age: 31 Year
  Sex: Female
  Weight: 69.75 kg

DRUGS (10)
  1. LITHIUM. [Concomitant]
     Active Substance: LITHIUM
  2. METROPOLOL [Concomitant]
     Active Substance: METOPROLOL
  3. VRAYLAR [Suspect]
     Active Substance: CARIPRAZINE
     Indication: ANXIETY
     Route: 048
  4. SPIRONOLACTONE. [Concomitant]
     Active Substance: SPIRONOLACTONE
  5. VRAYLAR [Suspect]
     Active Substance: CARIPRAZINE
     Indication: HYPOMANIA
     Route: 048
  6. IRON [Concomitant]
     Active Substance: IRON
  7. PROBIOTIC [Concomitant]
     Active Substance: PROBIOTICS NOS
  8. CLARITIN [Concomitant]
     Active Substance: LORATADINE
  9. LAMICTAL [Concomitant]
     Active Substance: LAMOTRIGINE
  10. VRAYLAR [Suspect]
     Active Substance: CARIPRAZINE
     Indication: BIPOLAR DISORDER
     Route: 048

REACTIONS (3)
  - Tremor [None]
  - Hypoaesthesia oral [None]
  - Hypoaesthesia [None]

NARRATIVE: CASE EVENT DATE: 20200713
